FAERS Safety Report 6491641-9 (Version None)
Quarter: 2009Q4

REPORT INFORMATION
  Report Type: 
  Country: None (occurrence: None)
  Receive Date: 20091125
  Receipt Date: 20090604
  Transmission Date: 20100525
  Serious: Yes (Hospitalization)
  Sender: FDA-Public Use
  Company Number: 2009BH008143

PATIENT
  Age: 46 Year
  Sex: Female

DRUGS (1)
  1. DIANEAL [Suspect]
     Indication: PERITONEAL DIALYSIS
     Dosage: 12 L ; EVERY DAY ; IP
     Route: 033
     Dates: start: 20020226, end: 20090101

REACTIONS (5)
  - DECREASED APPETITE [None]
  - NAUSEA [None]
  - PERITONITIS BACTERIAL [None]
  - PYREXIA [None]
  - VOMITING [None]
